FAERS Safety Report 25936164 (Version 2)
Quarter: 2025Q4

REPORT INFORMATION
  Report Type: Spontaneous
  Country: US (occurrence: US)
  Receive Date: 20251017
  Receipt Date: 20251017
  Transmission Date: 20260118
  Serious: No
  Sender: PFIZER
  Company Number: US-PFIZER INC-202500204064

PATIENT
  Age: 71 Year
  Sex: Male
  Weight: 90.703 kg

DRUGS (1)
  1. GLUCOTROL [Suspect]
     Active Substance: GLIPIZIDE
     Dosage: UNK
     Dates: start: 20250602

REACTIONS (2)
  - Intentional product misuse [Unknown]
  - Glycosylated haemoglobin decreased [Unknown]
